FAERS Safety Report 7274550-7 (Version None)
Quarter: 2011Q1

REPORT INFORMATION
  Report Type: 
  Country: None (occurrence: None)
  Receive Date: 20110201
  Receipt Date: 20110201
  Transmission Date: 20110831
  Serious: Yes (Hospitalization)
  Sender: FDA-Public Use
  Company Number: None

PATIENT
  Sex: Male
  Weight: 78.6991 kg

DRUGS (18)
  1. GEMCITABINE [Suspect]
     Indication: PANCREATIC CARCINOMA
     Dosage: 800 MG/M2 IV ONE DOSE ONLY
     Route: 042
     Dates: start: 20101229
  2. SIMVASTATIN [Concomitant]
  3. FUROSEMIDE [Concomitant]
  4. OXALIPLATIN [Suspect]
     Indication: PANCREATIC CARCINOMA
     Dosage: 85 MG/M2 IV ONE DOSE ONLY
     Route: 042
     Dates: start: 20101230
  5. URSODIOL (ATIGALL) [Concomitant]
  6. ERLOTINIB [Suspect]
     Indication: PANCREATIC CARCINOMA
     Dosage: 150 MG PO X 6 DAYS
     Route: 048
     Dates: start: 20101231, end: 20110105
  7. DIPYRIDAMOLE [Concomitant]
  8. M.V.I. [Concomitant]
  9. PROSCAR [Concomitant]
  10. FISH OIL [Concomitant]
  11. PROTONIX [Concomitant]
  12. BENICAR [Concomitant]
  13. PROCHLORPERAZINE MALEATE [Concomitant]
  14. OXYCODONE SR (OXYCONTIN) [Concomitant]
  15. AMLODIPINE [Concomitant]
  16. CHLOR-CON [Concomitant]
  17. GLIMEPIRIDE [Concomitant]
  18. ONDANSETRON HCL (ZOFRAN) [Concomitant]

REACTIONS (5)
  - DEVICE OCCLUSION [None]
  - OBSTRUCTION GASTRIC [None]
  - BLOOD BILIRUBIN INCREASED [None]
  - TUMOUR COMPRESSION [None]
  - WEIGHT DECREASED [None]
